FAERS Safety Report 21701912 (Version 5)
Quarter: 2023Q2

REPORT INFORMATION
  Report Type: Report from Study
  Country: US (occurrence: US)
  Receive Date: 20221208
  Receipt Date: 20230615
  Transmission Date: 20230721
  Serious: Yes (Other)
  Sender: FDA-Public Use
  Company Number: US-JAZZ-2022-US-028304

PATIENT
  Sex: Female

DRUGS (4)
  1. XYWAV [Suspect]
     Active Substance: CALCIUM OXYBATE\MAGNESIUM OXYBATE\POTASSIUM OXYBATE\SODIUM OXYBATE
     Indication: Hypersomnia
     Dosage: 3.25 GRAM, BID
  2. XYWAV [Suspect]
     Active Substance: CALCIUM OXYBATE\MAGNESIUM OXYBATE\POTASSIUM OXYBATE\SODIUM OXYBATE
     Dosage: 3.75 GRAMS FOR ONE DOSE AND 3.25 GRAMS FOR 2ND DOSE
  3. XYWAV [Suspect]
     Active Substance: CALCIUM OXYBATE\MAGNESIUM OXYBATE\POTASSIUM OXYBATE\SODIUM OXYBATE
     Dosage: 4 GRAM, BID
  4. XYWAV [Suspect]
     Active Substance: CALCIUM OXYBATE\MAGNESIUM OXYBATE\POTASSIUM OXYBATE\SODIUM OXYBATE
     Dosage: 4 GRAM FOR FIRST DOSE AND 3.75 GRAM FROM SECOND DOSE

REACTIONS (12)
  - Nephrolithiasis [Unknown]
  - Palpitations [Unknown]
  - Emergency care [Unknown]
  - Sleep apnoea syndrome [Unknown]
  - Arthritis [Unknown]
  - COVID-19 [Unknown]
  - Decreased appetite [Unknown]
  - Night sweats [Unknown]
  - Hypertension [Unknown]
  - Weight decreased [Unknown]
  - Treatment noncompliance [Unknown]
  - Product administration interrupted [Unknown]
